FAERS Safety Report 7940756-4 (Version None)
Quarter: 2011Q4

REPORT INFORMATION
  Report Type: 
  Country: None (occurrence: None)
  Receive Date: 20111128
  Receipt Date: 20111124
  Transmission Date: 20120403
  Serious: Yes (Other)
  Sender: FDA-Public Use
  Company Number: DE-PFIZER INC-2011287952

PATIENT
  Age: 32 Year
  Sex: Male

DRUGS (2)
  1. VARENICLINE TARTRATE [Suspect]
     Dosage: UNK
  2. VALPROIC ACID [Concomitant]
     Dosage: UNK

REACTIONS (1)
  - EPILEPSY [None]
